FAERS Safety Report 14726037 (Version 1)
Quarter: 2018Q2

REPORT INFORMATION
  Report Type: Spontaneous
  Country: PT (occurrence: PT)
  Receive Date: 20180406
  Receipt Date: 20180406
  Transmission Date: 20180711
  Serious: Yes (Disabling)
  Sender: FDA-Public Use
  Company Number: PT-TEVA-2018-PT-878821

PATIENT
  Age: 42 Year
  Sex: Female

DRUGS (3)
  1. MEBOCA?NA ANTI-INFLAM [Concomitant]
     Dosage: 1 DOSAGE FORMS DAILY; TABLET FOR SUCKING
     Route: 048
  2. IBUPROFEN. [Suspect]
     Active Substance: IBUPROFEN
     Indication: INFLUENZA
     Dosage: 1200 MILLIGRAM DAILY;
     Route: 048
     Dates: start: 20180203, end: 20180205
  3. VIBROCIL ACTILONGDUO [Suspect]
     Active Substance: IPRATROPIUM BROMIDE\XYLOMETAZOLINE HYDROCHLORIDE
     Indication: NASAL CONGESTION
     Dosage: 2 DOSAGE FORMS DAILY;
     Route: 045
     Dates: start: 20180203, end: 20180205

REACTIONS (2)
  - Visual impairment [Recovered/Resolved]
  - Vision blurred [Recovered/Resolved]

NARRATIVE: CASE EVENT DATE: 20180205
